FAERS Safety Report 5833807-4 (Version None)
Quarter: 2008Q3

REPORT INFORMATION
  Report Type: 
  Country: None (occurrence: None)
  Receive Date: 20080804
  Receipt Date: 20080804
  Transmission Date: 20090109
  Serious: Yes (Life-Threatening, Other)
  Sender: FDA-Public Use
  Company Number: None

PATIENT
  Age: 36 Year
  Sex: Male
  Weight: 57.6068 kg

DRUGS (1)
  1. CHANTIX [Suspect]
     Indication: SMOKING CESSATION THERAPY
     Dosage: 0.5 MG DAILY PO, 0.5 MG TWICE DAILY PO
     Route: 048
     Dates: start: 20080718, end: 20080725

REACTIONS (6)
  - AMNESIA [None]
  - FATIGUE [None]
  - HEADACHE [None]
  - PHYSICAL ABUSE [None]
  - PSYCHOTIC DISORDER [None]
  - SUICIDAL IDEATION [None]
